FAERS Safety Report 6381866-5 (Version None)
Quarter: 2009Q3

REPORT INFORMATION
  Report Type: 
  Country: None (occurrence: None)
  Receive Date: 20090925
  Receipt Date: 20090917
  Transmission Date: 20100115
  Serious: Yes (Death)
  Sender: FDA-Public Use
  Company Number: TRP_06125_2009

PATIENT
  Sex: Male
  Weight: 108.8633 kg

DRUGS (3)
  1. INFERGEN [Suspect]
     Indication: HEPATITIS C
     Dosage: (15 ?G QD SUBCUTANEOUS)
     Dates: start: 20090321
  2. RIBAVIRIN [Suspect]
     Indication: HEPATITIS C
     Dosage: (400 MG BID ORAL)
     Route: 048
  3. RIBAVIRIN [Suspect]
     Indication: HEPATITIS C
     Dosage: (1000 MG, [600 MG QAM AND 400 MG QPM] ORAL)
     Route: 048
     Dates: start: 20090321

REACTIONS (2)
  - INJECTION SITE INFECTION [None]
  - MYOCARDIAL INFARCTION [None]
